FAERS Safety Report 9138068 (Version 1)
Quarter: 2013Q1

REPORT INFORMATION
  Report Type: Spontaneous
  Country: ES (occurrence: ES)
  Receive Date: 20130304
  Receipt Date: 20130304
  Transmission Date: 20140127
  Serious: Yes (Hospitalization)
  Sender: FDA-Public Use
  Company Number: ES-ASTRAZENECA-2013SE12891

PATIENT
  Age: 81 Year
  Sex: Male

DRUGS (6)
  1. CRESTOR [Suspect]
     Indication: HYPERLIPIDAEMIA
     Route: 048
     Dates: start: 2011, end: 20110404
  2. SERC [Suspect]
     Indication: VERTIGO
     Route: 048
     Dates: start: 2009, end: 20120404
  3. ZYLORIC [Suspect]
     Indication: HYPERURICAEMIA
     Route: 048
     Dates: end: 20120404
  4. OOPENVAS [Suspect]
     Indication: HYPERTENSION
     Dosage: 20 MG/12.5 MG, 1 DF DAILY
     Route: 048
     Dates: start: 2011, end: 20120404
  5. ORFIDAL [Concomitant]
     Route: 048
  6. DOLOCATIL [Concomitant]
     Indication: PAIN
     Route: 048

REACTIONS (3)
  - Diarrhoea [Recovered/Resolved]
  - Renal failure acute [Recovered/Resolved]
  - Dehydration [Unknown]
